FAERS Safety Report 23106238 (Version 4)
Quarter: 2024Q4

REPORT INFORMATION
  Report Type: Spontaneous
  Country: US (occurrence: US)
  Receive Date: 20231025
  Receipt Date: 20241121
  Transmission Date: 20250114
  Serious: Yes (Other)
  Sender: PFIZER
  Company Number: US-PFIZER INC-PV202300175634

PATIENT
  Age: 72 Year
  Sex: Female

DRUGS (1)
  1. TOFACITINIB CITRATE [Suspect]
     Active Substance: TOFACITINIB CITRATE
     Dosage: TAKE 1 TABLET BY MOUTH DAILY
     Route: 048

REACTIONS (6)
  - Chronic kidney disease [Recovering/Resolving]
  - Condition aggravated [Recovered/Resolved]
  - Joint swelling [Unknown]
  - Gait disturbance [Unknown]
  - Normocytic anaemia [Recovered/Resolved]
  - Blood immunoglobulin G decreased [Recovering/Resolving]
